FAERS Safety Report 14359211 (Version 2)
Quarter: 2018Q1

REPORT INFORMATION
  Report Type: Report from Study
  Country: US (occurrence: US)
  Receive Date: 20180105
  Receipt Date: 20180105
  Transmission Date: 20180509
  Serious: No
  Sender: FDA-Public Use
  Company Number: US-AMGEN-USASL2016071588

PATIENT
  Age: 78 Year
  Sex: Female

DRUGS (1)
  1. REPATHA [Suspect]
     Active Substance: EVOLOCUMAB
     Indication: DYSLIPIDAEMIA
     Route: 065

REACTIONS (5)
  - Pain in extremity [Unknown]
  - Musculoskeletal pain [Unknown]
  - Nasopharyngitis [Recovering/Resolving]
  - Musculoskeletal discomfort [Recovering/Resolving]
  - Neck pain [Recovering/Resolving]

NARRATIVE: CASE EVENT DATE: 20160530
